FAERS Safety Report 21298175 (Version 2)
Quarter: 2022Q4

REPORT INFORMATION
  Report Type: Spontaneous
  Country: US (occurrence: US)
  Receive Date: 20220906
  Receipt Date: 20221228
  Transmission Date: 20230113
  Serious: Yes (Hospitalization, Other)
  Sender: FDA-Public Use
  Company Number: US-PFIZER INC-PV202200056666

PATIENT
  Age: 90 Year
  Sex: Male

DRUGS (3)
  1. VYNDAMAX [Suspect]
     Active Substance: TAFAMIDIS
     Indication: Amyloidosis
     Dosage: 61 MG
  2. VYNDAMAX [Suspect]
     Active Substance: TAFAMIDIS
     Dosage: UNK, 1X/DAY
     Dates: start: 202209
  3. FARXIGA [Concomitant]
     Active Substance: DAPAGLIFLOZIN PROPANEDIOL
     Indication: Diabetes mellitus
     Dosage: UNK

REACTIONS (14)
  - Pulmonary oedema [Unknown]
  - Pericardial effusion [Unknown]
  - Peripheral swelling [Unknown]
  - Fluid retention [Unknown]
  - Pruritus [Not Recovered/Not Resolved]
  - Burning sensation [Not Recovered/Not Resolved]
  - Rash [Unknown]
  - Chest pain [Unknown]
  - Sensitive skin [Unknown]
  - Skin atrophy [Unknown]
  - Balance disorder [Unknown]
  - Weight decreased [Unknown]
  - Off label use [Unknown]
  - Drug ineffective for unapproved indication [Unknown]

NARRATIVE: CASE EVENT DATE: 20220101
